FAERS Safety Report 8318905 (Version 2)
Quarter: 2012Q4

REPORT INFORMATION
  Report Type: 
  Country: SK (occurrence: SK)
  Receive Date: 20120103
  Receipt Date: 20121012
  Transmission Date: 20130627
  Serious: Yes (Other)
  Sender: FDA-Public Use
  Company Number: SK-UCBSA-046837

PATIENT
  Age: 30 Year
  Sex: Female
  Weight: 70 kg

DRUGS (2)
  1. KEPPRA [Suspect]
     Dosage: started with 1000-0-500 mg daily,1500-2000mg daily for the whole period of gravidity
     Route: 048
     Dates: start: 20091214
  2. ACIDUM FOLICUM [Concomitant]
     Indication: INFERTILITY
     Route: 048
     Dates: start: 20111110, end: 2012

REACTIONS (4)
  - High risk pregnancy [Unknown]
  - Sleep terror [Unknown]
  - Trismus [Unknown]
  - Pregnancy [Recovered/Resolved]
